FAERS Safety Report 17643459 (Version 1)
Quarter: 2020Q2

REPORT INFORMATION
  Report Type: Spontaneous
  Country: US (occurrence: US)
  Receive Date: 20200408
  Receipt Date: 20200408
  Transmission Date: 20200713
  Serious: Yes (Hospitalization)
  Sender: FDA-Public Use
  Company Number: None

PATIENT
  Sex: Female

DRUGS (5)
  1. TRAMADOL. [Concomitant]
     Active Substance: TRAMADOL
  2. DALFAMPRIDINE. [Suspect]
     Active Substance: DALFAMPRIDINE
     Indication: MULTIPLE SCLEROSIS
     Route: 048
     Dates: start: 20181120
  3. MARINOL [Concomitant]
     Active Substance: DRONABINOL
  4. NEURONTIN [Concomitant]
     Active Substance: GABAPENTIN
  5. CHOLESTYRAM POWD [Concomitant]

REACTIONS (2)
  - Multiple sclerosis relapse [None]
  - Stress [None]
